FAERS Safety Report 6035656-3 (Version None)
Quarter: 2009Q1

REPORT INFORMATION
  Report Type: 
  Country: None (occurrence: None)
  Receive Date: 20090113
  Receipt Date: 20090109
  Transmission Date: 20090719
  Serious: Yes (Death, Hospitalization, Other)
  Sender: FDA-Public Use
  Company Number: PHHY2009BR00953

PATIENT
  Age: 86 Year
  Sex: Female

DRUGS (3)
  1. EXFORGE [Suspect]
     Indication: HYPERTENSION
     Dosage: 160 MG VALSARTAN/5 MG AMLODIPINE, ONCE DAILY
     Route: 048
     Dates: start: 20080626
  2. INSULIN [Concomitant]
     Dosage: 25 UNITS IN THE MORNING AND 10 UNITS AT NIGHT
     Route: 058
  3. MULTIVITAMIN PREPARATIONS WITH OR W/O MINERAL [Concomitant]
     Indication: VITAMIN SUPPLEMENTATION
     Dosage: 1 DF, ONCE/SINGLE
     Route: 048

REACTIONS (6)
  - ARTERIOSCLEROSIS [None]
  - BRONCHOPNEUMONIA [None]
  - FALL [None]
  - FAT EMBOLISM [None]
  - FEMUR FRACTURE [None]
  - RESPIRATORY DISORDER [None]
